FAERS Safety Report 9003903 (Version 3)
Quarter: 2013Q1

REPORT INFORMATION
  Report Type: Report from Study
  Country: US (occurrence: US)
  Receive Date: 20130108
  Receipt Date: 20130124
  Transmission Date: 20140127
  Serious: Yes (Hospitalization)
  Sender: FDA-Public Use
  Company Number: US-JNJFOC-20130102009

PATIENT
  Age: 18 Year
  Sex: Female
  Weight: 56.5 kg

DRUGS (3)
  1. REMICADE [Suspect]
     Indication: CROHN^S DISEASE
     Route: 042
     Dates: start: 20090112
  2. PROBIOTICS [Concomitant]
  3. PREVACID [Concomitant]

REACTIONS (1)
  - Constipation [Recovered/Resolved]
